FAERS Safety Report 17114149 (Version 1)
Quarter: 2019Q4

REPORT INFORMATION
  Report Type: Spontaneous
  Country: DE (occurrence: DE)
  Receive Date: 20191205
  Receipt Date: 20191205
  Transmission Date: 20200122
  Serious: Yes (Life-Threatening, Other)
  Sender: FDA-Public Use
  Company Number: DE-AUROBINDO-AUR-APL-2019-103123

PATIENT
  Age: 3 Year
  Sex: Male

DRUGS (5)
  1. MELPHALAN. [Suspect]
     Active Substance: MELPHALAN
     Indication: NEUROBLASTOMA
     Dosage: 140 MILLIGRAM/SQ. METER, ONCE A DAY
     Route: 065
  2. AMPHOTERICIN B. [Concomitant]
     Active Substance: AMPHOTERICIN B
     Indication: PROPHYLAXIS
     Dosage: 100 MILLIGRAM, 3 TIMES A DAY
     Route: 048
  3. SULFAMETHOXAZOLE;TRIMETHOPRIM [Suspect]
     Active Substance: SULFAMETHOXAZOLE\TRIMETHOPRIM
     Indication: PROPHYLAXIS
     Dosage: 4 MILLIGRAM/SQ. METER, TWO TIMES A DAY, ON 2 DAYS PER WEEK
     Route: 065
  4. ACICLOVIR [Concomitant]
     Active Substance: ACYCLOVIR
     Indication: PROPHYLAXIS
     Dosage: 5 MILLIGRAM/KILOGRAM, 3 TIMES A DAY
     Route: 065
  5. TREOSULFAN [Suspect]
     Active Substance: TREOSULFAN
     Indication: NEUROBLASTOMA
     Dosage: 12 GRAM PER SQUARE METRE FOR 3 DAYS
     Route: 065

REACTIONS (3)
  - Drug resistance [Recovered/Resolved]
  - Moraxella infection [Recovered/Resolved]
  - Mucosal inflammation [Recovered/Resolved]
